FAERS Safety Report 9099949 (Version 2)
Quarter: 2013Q1

REPORT INFORMATION
  Report Type: Spontaneous
  Country: GB (occurrence: GB)
  Receive Date: 20130215
  Receipt Date: 20130226
  Transmission Date: 20140127
  Serious: Yes (Death)
  Sender: FDA-Public Use
  Company Number: GB-PFIZER INC-2013058867

PATIENT
  Age: 73 Year
  Sex: Male

DRUGS (7)
  1. ATORVASTATIN [Suspect]
     Indication: BLOOD CHOLESTEROL INCREASED
     Dosage: 20 MG, UNK
     Route: 048
     Dates: start: 20121217
  2. LANSOPRAZOLE [Concomitant]
     Dosage: 30 MG, 1X/DAY
  3. DOVOBET [Concomitant]
     Dosage: APPLY DAILY
  4. BENDROFLUMETHIAZIDE [Concomitant]
     Dosage: 2.5 MG, 1X/DAY
  5. RAMIPRIL [Concomitant]
     Dosage: 2.5 MG, 1X/DAY
  6. AMLODIPINE [Concomitant]
     Dosage: 10 MG, 1X/DAY
  7. SIMVASTATIN [Concomitant]
     Dosage: 40 MG, UNK

REACTIONS (1)
  - Myocardial infarction [Fatal]
